FAERS Safety Report 13716681 (Version 5)
Quarter: 2017Q3

REPORT INFORMATION
  Report Type: Spontaneous
  Country: US (occurrence: US)
  Receive Date: 20170705
  Receipt Date: 20170919
  Transmission Date: 20171127
  Serious: No
  Sender: FDA-Public Use
  Company Number: US-ACTELION-A-US2017-155565

PATIENT
  Age: 1 Year
  Sex: Male
  Weight: 9.98 kg

DRUGS (3)
  1. TRACLEER [Suspect]
     Active Substance: BOSENTAN
     Indication: PULMONARY HYPERTENSION
     Dosage: 15.625 MG, BID
     Route: 048
  2. REMODULIN [Concomitant]
     Active Substance: TREPROSTINIL
  3. REVATIO [Concomitant]
     Active Substance: SILDENAFIL CITRATE

REACTIONS (13)
  - Catheter site mass [Unknown]
  - Catheter site infection [Unknown]
  - Heart rate increased [Unknown]
  - Oxygen saturation decreased [Unknown]
  - Catheter site warmth [Unknown]
  - Catheter site pain [Unknown]
  - Device connection issue [Unknown]
  - Catheter site related reaction [Unknown]
  - Diarrhoea [Unknown]
  - Listless [Unknown]
  - Drug dose omission [Unknown]
  - Catheter site erythema [Unknown]
  - Catheter placement [Unknown]
